FAERS Safety Report 7271758-1 (Version None)
Quarter: 2011Q1

REPORT INFORMATION
  Report Type: 
  Country: None (occurrence: None)
  Receive Date: 20110203
  Receipt Date: 20110128
  Transmission Date: 20110831
  Serious: Yes (Death, Life-Threatening, Hospitalization, Other)
  Sender: FDA-Public Use
  Company Number: JP-ASTELLAS-2010JP005847

PATIENT
  Sex: Male
  Weight: 37.6 kg

DRUGS (12)
  1. PROGRAF [Suspect]
     Dosage: 1 MG, UID/QD
     Route: 041
     Dates: start: 20090516, end: 20090501
  2. CYTARABINE [Concomitant]
     Route: 065
  3. PROGRAF [Suspect]
     Indication: PROPHYLAXIS AGAINST GRAFT VERSUS HOST DISEASE
     Dosage: 0.8 MG, UID/QD
     Route: 041
     Dates: start: 20090219, end: 20090331
  4. PROGRAF [Suspect]
     Dosage: 0.2 MG, BID
     Route: 048
     Dates: start: 20090509, end: 20090515
  5. ETOPOSIDE [Concomitant]
     Route: 065
  6. ETOPOSIDE [Concomitant]
     Dosage: 300 MG/M2, UNKNOWN/D
     Route: 065
  7. PROGRAF [Suspect]
     Dosage: 0.4 MG, BID
     Route: 048
     Dates: start: 20090415, end: 20090508
  8. THYMOGLOBULIN [Suspect]
     Dosage: 94 MG, UID/QD
     Route: 041
     Dates: start: 20090217, end: 20090218
  9. CYCLOPHOSPHAMIDE [Concomitant]
     Dosage: 500 MG/KG, UNKNOWN/D
     Route: 065
  10. PROGRAF [Suspect]
     Dosage: 0.6 MG, BID
     Route: 048
     Dates: start: 20090401, end: 20090414
  11. L-PAM [Suspect]
     Dosage: 70 MG/M2, UNKNOWN/D
     Route: 065
  12. METHOTREXATE [Concomitant]
     Indication: STEM CELL TRANSPLANT
     Route: 065

REACTIONS (4)
  - CYTOMEGALOVIRUS INFECTION [None]
  - HISTIOCYTOSIS HAEMATOPHAGIC [None]
  - EPSTEIN-BARR VIRUS ASSOCIATED LYMPHOPROLIFERATIVE DISORDER [None]
  - CYSTITIS HAEMORRHAGIC [None]
